FAERS Safety Report 5019282-0 (Version None)
Quarter: 2006Q2

REPORT INFORMATION
  Report Type: 
  Country: None (occurrence: None)
  Receive Date: 20060531
  Receipt Date: 20060518
  Transmission Date: 20061013
  Serious: No
  Sender: FDA-Public Use
  Company Number: BR-2006-012256

PATIENT
  Age: 28 Year
  Sex: Female

DRUGS (1)
  1. YASMIN [Suspect]
     Dosage: 1 TAB(S), ORAL
     Route: 048
     Dates: start: 20050301, end: 20060301

REACTIONS (2)
  - CONDITION AGGRAVATED [None]
  - VARICOSE VEIN [None]
